FAERS Safety Report 8930492 (Version 2)
Quarter: 2012Q4

REPORT INFORMATION
  Report Type: 
  Country: US (occurrence: US)
  Receive Date: 20121128
  Receipt Date: 20121207
  Transmission Date: 20130627
  Serious: Yes (Other)
  Sender: FDA-Public Use
  Company Number: US-BAYER-2012-123761

PATIENT
  Sex: Female

DRUGS (2)
  1. YASMIN [Suspect]
     Dosage: 3mg/0.03mg; UNK
     Route: 048
  2. YAZ [Suspect]

REACTIONS (5)
  - Abortion [None]
  - Pregnancy on oral contraceptive [None]
  - Drug ineffective [None]
  - Thrombosis [None]
  - Stress [None]
